FAERS Safety Report 4843079-5 (Version None)
Quarter: 2005Q4

REPORT INFORMATION
  Report Type: 
  Country: None (occurrence: None)
  Receive Date: 20051201
  Receipt Date: 20051121
  Transmission Date: 20060501
  Serious: Yes (Hospitalization)
  Sender: FDA-Public Use
  Company Number: ES-ABBOTT-05P-144-0317753-00

PATIENT
  Age: 89 Year
  Sex: Female

DRUGS (6)
  1. CIPRALEX FILM-COATED TABLETS [Suspect]
     Indication: DEPRESSION
     Route: 048
     Dates: start: 20050621, end: 20050701
  2. INDAPAMIDE [Suspect]
     Indication: ESSENTIAL HYPERTENSION
     Route: 048
     Dates: end: 20050627
  3. LORMETAZEPAM [Concomitant]
     Indication: DEPRESSION
     Route: 048
     Dates: start: 20050621
  4. GABAPENTIN [Concomitant]
     Indication: NEURALGIA
     Route: 048
  5. TIMOLOL MALEATE [Concomitant]
     Indication: GLAUCOMA
     Route: 061
     Dates: start: 20000101
  6. GLICLAZIDE [Concomitant]
     Indication: DIABETES MELLITUS
     Route: 048

REACTIONS (4)
  - CEREBRAL ATROPHY [None]
  - CEREBRAL ISCHAEMIA [None]
  - HYPOKALAEMIA [None]
  - HYPONATRAEMIA [None]
